FAERS Safety Report 6276217-0 (Version None)
Quarter: 2009Q3

REPORT INFORMATION
  Report Type: 
  Country: None (occurrence: None)
  Receive Date: 20090722
  Receipt Date: 20090717
  Transmission Date: 20100115
  Serious: No
  Sender: FDA-Public Use
  Company Number: US-BAYER-200926988NA

PATIENT
  Age: 62 Year
  Sex: Male

DRUGS (4)
  1. VARDENAFIL HYDROCHLORIDE [Suspect]
     Indication: PROSTATE CANCER
     Dosage: GIVEN 6 PILLS FOR 90 DAYS
     Route: 048
     Dates: start: 20090112, end: 20090609
  2. LISINOPRIL [Concomitant]
     Dosage: TOTAL DAILY DOSE: 40 MG
     Dates: start: 20081001
  3. LISINOPRIL [Concomitant]
     Dosage: TOTAL DAILY DOSE: 60 MG
     Dates: start: 20090301
  4. ASPIRIN [Concomitant]
     Indication: HEADACHE

REACTIONS (2)
  - ADVERSE EVENT [None]
  - SOMNOLENCE [None]
